FAERS Safety Report 6604654-0 (Version None)
Quarter: 2010Q1

REPORT INFORMATION
  Report Type: 
  Country: None (occurrence: None)
  Receive Date: 20100226
  Receipt Date: 20100223
  Transmission Date: 20100710
  Serious: Yes (Other)
  Sender: FDA-Public Use
  Company Number: JP-SANOFI-AVENTIS-2010SA010446

PATIENT
  Age: 50 Year
  Sex: Female

DRUGS (3)
  1. LANTUS [Suspect]
     Indication: TYPE 1 DIABETES MELLITUS
     Route: 058
     Dates: end: 20100222
  2. SOLOSTAR [Suspect]
     Dates: end: 20100222
  3. NOVORAPID [Concomitant]
     Indication: TYPE 1 DIABETES MELLITUS

REACTIONS (1)
  - BREAST CANCER [None]
